FAERS Safety Report 9092929 (Version 1)
Quarter: 2013Q1

REPORT INFORMATION
  Report Type: Spontaneous
  Country: FR (occurrence: FR)
  Receive Date: 20130201
  Receipt Date: 20130201
  Transmission Date: 20140127
  Serious: Yes (Hospitalization, Other)
  Sender: FDA-Public Use
  Company Number: FR-PFIZER INC-2013040831

PATIENT
  Age: 94 Year
  Sex: Female

DRUGS (7)
  1. CORDARONE [Suspect]
     Dosage: 200 MG, DAILY
     Route: 048
     Dates: end: 20121123
  2. KARDEGIC [Suspect]
     Dosage: 75 MG, DAILY
     Route: 048
  3. XARELTO [Suspect]
     Dosage: 15 MG, DAILY
     Route: 048
     Dates: end: 20121122
  4. VERAPAMIL [Suspect]
     Dosage: 120 MG, DAILY
     Route: 048
     Dates: end: 20121118
  5. LEVOTHYROX [Concomitant]
     Dosage: UNK
  6. LAROXYL [Concomitant]
     Dosage: UNK
     Dates: end: 20121122
  7. IMOVANE [Concomitant]
     Dosage: UNK
     Dates: end: 20121122

REACTIONS (4)
  - Fall [Unknown]
  - Subdural haemorrhage [Recovering/Resolving]
  - Traumatic haematoma [Recovering/Resolving]
  - Cardiac failure acute [Unknown]
